FAERS Safety Report 16946242 (Version 1)
Quarter: 2019Q4

REPORT INFORMATION
  Report Type: Spontaneous
  Country: US (occurrence: US)
  Receive Date: 20191022
  Receipt Date: 20191022
  Transmission Date: 20200122
  Serious: No
  Sender: FDA-Public Use
  Company Number: US-SA-2019SA288214

PATIENT
  Sex: Female

DRUGS (1)
  1. TUBERSOL [Suspect]
     Active Substance: TUBERCULIN PURIFIED PROTEIN DERIVATIVE
     Indication: TUBERCULIN TEST
     Dosage: UNK
     Route: 065
     Dates: start: 201906

REACTIONS (7)
  - Pruritus [Unknown]
  - Injection site reaction [Unknown]
  - Hypersensitivity [Unknown]
  - Mass [Unknown]
  - Urticaria [Unknown]
  - Product administered at inappropriate site [Unknown]
  - Inflammation [Unknown]
